FAERS Safety Report 6088417-3 (Version None)
Quarter: 2009Q1

REPORT INFORMATION
  Report Type: 
  Country: None (occurrence: None)
  Receive Date: 20090224
  Receipt Date: 20090210
  Transmission Date: 20090719
  Serious: Yes (Hospitalization, Other)
  Sender: FDA-Public Use
  Company Number: FR-PFIZER INC-2007022905

PATIENT

DRUGS (9)
  1. BLINDED *PLACEBO [Suspect]
     Indication: PULMONARY HYPERTENSION
     Dosage: 20 MG, 3X/DAY
     Route: 048
     Dates: start: 20070412
  2. BLINDED SILDENAFIL CITRATE [Suspect]
     Indication: PULMONARY HYPERTENSION
     Dosage: 20 MG, 3X/DAY
     Route: 048
     Dates: start: 20070412
  3. BUFLOMEDIL [Concomitant]
     Route: 048
     Dates: start: 19970101
  4. PLAVIX [Concomitant]
     Route: 048
     Dates: start: 19970101
  5. DILTIAZEM HCL [Concomitant]
     Route: 048
     Dates: start: 19970101
  6. EUPANTOL [Concomitant]
     Route: 048
     Dates: start: 19970101
  7. TRACLEER [Concomitant]
     Route: 048
     Dates: start: 20020101
  8. FERROGRAD [Concomitant]
     Route: 048
     Dates: start: 20060101
  9. PRISTINAMYCIN [Concomitant]
     Route: 048
     Dates: start: 20070207, end: 20070228

REACTIONS (2)
  - ANAEMIA [None]
  - THROMBOPHLEBITIS [None]
